FAERS Safety Report 8947123 (Version 1)
Quarter: 2012Q4

REPORT INFORMATION
  Report Type: 
  Country: DE (occurrence: DE)
  Receive Date: 20121205
  Receipt Date: 20121205
  Transmission Date: 20130627
  Serious: Yes (Death, Life-Threatening)
  Sender: FDA-Public Use
  Company Number: DE-MYLANLABS-2012S1024595

PATIENT
  Age: 54 Year
  Sex: Male

DRUGS (3)
  1. TACROLIMUS [Suspect]
     Indication: IMMUNOSUPPRESSANT DRUG THERAPY
     Dosage: 8 mg/day
     Route: 065
  2. PREDNISOLONE [Suspect]
     Indication: IMMUNOSUPPRESSANT DRUG THERAPY
     Dosage: 15 mg/day
     Route: 065
  3. METHOTREXATE [Suspect]
     Indication: BRAIN STEM SYNDROME
     Route: 037

REACTIONS (3)
  - Post transplant lymphoproliferative disorder [Unknown]
  - Burkitt^s lymphoma [Unknown]
  - Respiratory arrest [Fatal]
